FAERS Safety Report 9806969 (Version 2)
Quarter: 2014Q1

REPORT INFORMATION
  Report Type: Spontaneous
  Country: PL (occurrence: PL)
  Receive Date: 20140109
  Receipt Date: 20140109
  Transmission Date: 20141002
  Serious: Yes (Other)
  Sender: FDA-Public Use
  Company Number: PL-MERCK-1306POL012392

PATIENT
  Sex: 0

DRUGS (4)
  1. TEMOZOLOMIDE [Suspect]
     Indication: EWING^S SARCOMA
     Dosage: 125 MG/M2, FOR 5 CONSECUTIVE DAYS
     Route: 048
  2. VINCRISTINE SULFATE [Suspect]
     Indication: EWING^S SARCOMA
     Dosage: 1.5 MG/M2,ON DAY ONE OF THE CYCLE, (MAXIMUM DOSE 2 MG)
  3. IRINOTECAN HYDROCHLORIDE [Suspect]
     Indication: EWING^S SARCOMA
     Dosage: 50 MG/M2 ONE HOUR AFTER TEMOZOLOMIDE FOR 5 CONSECUTIVE DAYS
     Route: 042
  4. RIFAXIMIN [Concomitant]
     Indication: PROPHYLAXIS AGAINST DIARRHOEA
     Dosage: 200 MG, TID, DAYS 1 TO 6 OF EACH CYCLE
     Route: 048

REACTIONS (2)
  - Ewing^s sarcoma [Unknown]
  - Off label use [Unknown]
